FAERS Safety Report 6128401-4 (Version None)
Quarter: 2009Q1

REPORT INFORMATION
  Report Type: 
  Country: None (occurrence: None)
  Receive Date: 20090323
  Receipt Date: 20090311
  Transmission Date: 20090719
  Serious: Yes (Death)
  Sender: FDA-Public Use
  Company Number: JP-ROCHE-605411

PATIENT
  Sex: Male

DRUGS (12)
  1. CAPECITABINE [Suspect]
     Indication: RECTAL CANCER
     Dosage: NOTE: 2 WEEK ADMINISTRATION FOLLOWED BY 1 WEEK REST
     Route: 048
     Dates: start: 20080903, end: 20080917
  2. CAPECITABINE [Suspect]
     Dosage: TWO WEEKS ADMINISTERATION FOLLOWED BY ONE WEEK REST
     Route: 048
     Dates: start: 20081002, end: 20081016
  3. CAPECITABINE [Suspect]
     Dosage: TWO WEEKS ADMINISTERATION FOLLOWED BY ONE WEEK REST
     Route: 048
     Dates: start: 20081106, end: 20081120
  4. CAPECITABINE [Suspect]
     Dosage: TWO WEEK ADMINISTERATION FOLLOWED BY ONE WEEK REST
     Route: 048
     Dates: start: 20081204, end: 20081218
  5. LENDORMIN [Concomitant]
     Route: 048
     Dates: start: 20080823, end: 20081218
  6. FOIPAN [Concomitant]
     Route: 048
     Dates: start: 20080902, end: 20081218
  7. PYDOXAL [Concomitant]
     Dosage: DRUG REPORTED AS PYDOXAL TAB
     Route: 048
     Dates: start: 20080906, end: 20081218
  8. LASIX [Concomitant]
     Dosage: FORM: ORAL FORMULATION (NOT OTHERWISE SPECIFIED).
     Route: 048
     Dates: start: 20080909, end: 20081218
  9. VESICARE [Concomitant]
     Route: 048
     Dates: start: 20080926, end: 20081218
  10. FLIVAS [Concomitant]
     Dosage: DRUG: FLIVAS OD
     Route: 048
     Dates: start: 20080926, end: 20081218
  11. LOXONIN [Concomitant]
     Dosage: NOTE: UNCERTAINITY
     Route: 048
  12. MUCOSTA [Concomitant]
     Dosage: NOTE: UNCERTAINITY
     Route: 048

REACTIONS (4)
  - DYSGEUSIA [None]
  - PNEUMONIA [None]
  - PYREXIA [None]
  - SHOCK [None]
